FAERS Safety Report 14629392 (Version 1)
Quarter: 2018Q1

REPORT INFORMATION
  Report Type: Spontaneous
  Country: US (occurrence: US)
  Receive Date: 20180313
  Receipt Date: 20180313
  Transmission Date: 20180509
  Serious: Yes (Other)
  Sender: FDA-Public Use
  Company Number: US-TEVA-761951USA

PATIENT
  Age: 87 Year
  Sex: Female
  Weight: 83.01 kg

DRUGS (5)
  1. LISINOPRIL. [Concomitant]
     Active Substance: LISINOPRIL
  2. XARELTO [Concomitant]
     Active Substance: RIVAROXABAN
  3. COREG [Concomitant]
     Active Substance: CARVEDILOL
  4. DISOPYRAMIDE [Suspect]
     Active Substance: DISOPYRAMIDE
     Indication: ATRIAL FIBRILLATION
     Dates: start: 20170206
  5. NORPACE [Suspect]
     Active Substance: DISOPYRAMIDE PHOSPHATE
     Dosage: 300 MILLIGRAM DAILY;
     Dates: start: 1998

REACTIONS (5)
  - Fatigue [Unknown]
  - Heart rate increased [Recovered/Resolved]
  - Dizziness [Unknown]
  - Tachycardia [Unknown]
  - Product substitution issue [Unknown]

NARRATIVE: CASE EVENT DATE: 201702
